FAERS Safety Report 9387194 (Version 1)
Quarter: 2013Q3

REPORT INFORMATION
  Report Type: Spontaneous
  Country: TR (occurrence: TR)
  Receive Date: 20130708
  Receipt Date: 20130708
  Transmission Date: 20140515
  Serious: Yes (Death)
  Sender: FDA-Public Use
  Company Number: TR-ACTELION-A-CH2013-85425

PATIENT
  Sex: 0

DRUGS (1)
  1. TRACLEER [Suspect]
     Indication: EISENMENGER^S SYNDROME
     Route: 048

REACTIONS (2)
  - Eisenmenger^s syndrome [Fatal]
  - Disease progression [Fatal]
